FAERS Safety Report 19806417 (Version 1)
Quarter: 2021Q3

REPORT INFORMATION
  Report Type: Report from Study
  Country: US (occurrence: US)
  Receive Date: 20210908
  Receipt Date: 20210908
  Transmission Date: 20211014
  Serious: Yes (Life-Threatening, Other)
  Sender: FDA-Public Use
  Company Number: US-ELI_LILLY_AND_COMPANY-US202109002156

PATIENT

DRUGS (2)
  1. CERITINIB [Concomitant]
     Active Substance: CERITINIB
     Indication: HEAD AND NECK CANCER
     Dosage: UNK UNK, DAILY
     Route: 048
  2. GEMCITABINE HYDROCHLORIDE. [Suspect]
     Active Substance: GEMCITABINE HYDROCHLORIDE
     Indication: HEAD AND NECK CANCER
     Dosage: DAYS 1/8/15 (28?DAY CYCLE),, CYCLICAL
     Route: 042

REACTIONS (4)
  - Pericardial effusion [Unknown]
  - Syncope [Unknown]
  - Atrial fibrillation [Unknown]
  - Cardiac tamponade [Unknown]
